FAERS Safety Report 16902411 (Version 1)
Quarter: 2019Q4

REPORT INFORMATION
  Report Type: Report from Study
  Country: CA (occurrence: CA)
  Receive Date: 20191010
  Receipt Date: 20191010
  Transmission Date: 20200122
  Serious: Yes (Other)
  Sender: FDA-Public Use
  Company Number: CA-KARYOPHARM THERAPEUTICS, INC.-2019KPT000310

PATIENT
  Age: 74 Year
  Sex: Male
  Weight: 51 kg

DRUGS (13)
  1. DEXAMETHASONE. [Suspect]
     Active Substance: DEXAMETHASONE
     Indication: PLASMA CELL MYELOMA
     Dosage: 20 MG, 4X/WEEK
     Route: 048
     Dates: start: 20180227, end: 20180331
  2. BORTEZOMIB. [Suspect]
     Active Substance: BORTEZOMIB
     Indication: PLASMA CELL MYELOMA
     Dosage: 1.3 MG/M2, 2X/WEEK
     Route: 058
     Dates: start: 20180227, end: 20180601
  3. DEXAMETHASONE. [Suspect]
     Active Substance: DEXAMETHASONE
     Dosage: 20 MG, 2X/WEEK
     Route: 048
     Dates: start: 20180612, end: 20190704
  4. VALTREX [Concomitant]
     Active Substance: VALACYCLOVIR HYDROCHLORIDE
     Indication: PROPHYLAXIS
     Dosage: 500 MG, QD
     Route: 048
     Dates: start: 20190112
  5. REACTINE [CETIRIZINE HYDROCHLORIDE] [Concomitant]
     Active Substance: CETIRIZINE HYDROCHLORIDE
     Indication: PRODUCT USED FOR UNKNOWN INDICATION
     Dosage: 5 MG, PRN
     Route: 048
     Dates: start: 2008
  6. SELINEXOR [Suspect]
     Active Substance: SELINEXOR
     Indication: PLASMA CELL MYELOMA
     Dosage: 100 MG, WEEKLY
     Route: 048
     Dates: start: 20181224, end: 20190704
  7. BORTEZOMIB. [Suspect]
     Active Substance: BORTEZOMIB
     Dosage: 1.3 MG/M2, WEEKLY
     Dates: start: 20180612, end: 20190704
  8. MELATONIN [Concomitant]
     Active Substance: MELATONIN
     Indication: INSOMNIA
     Dosage: 10 MG, QD
     Dates: start: 20190610, end: 20190612
  9. DEXAMETHASONE. [Suspect]
     Active Substance: DEXAMETHASONE
     Dosage: 10 MG, 4X/WEEK
     Route: 048
     Dates: start: 20180410, end: 20180602
  10. DIPHENHYDRAMINE. [Concomitant]
     Active Substance: DIPHENHYDRAMINE
     Indication: COUGH
     Dosage: 25 MG, SINGLE
     Dates: start: 20190609, end: 20190609
  11. MEGACE [Concomitant]
     Active Substance: MEGESTROL ACETATE
     Indication: DECREASED APPETITE
     Dosage: 400 MG, 2X/WEEK
     Route: 048
     Dates: start: 20190306
  12. VITAMIN D [Concomitant]
     Active Substance: VITAMIN D NOS
     Indication: SUPPLEMENTATION THERAPY
     Dosage: 1000 MG, QD
     Route: 048
     Dates: start: 20180717
  13. ONDANSETRON [Concomitant]
     Active Substance: ONDANSETRON
     Indication: PROPHYLAXIS OF NAUSEA AND VOMITING
     Dosage: 8 MG, PRN
     Route: 048
     Dates: start: 20181224

REACTIONS (2)
  - Confusional state [Recovered/Resolved]
  - Cognitive disorder [Recovered/Resolved]

NARRATIVE: CASE EVENT DATE: 20190613
